FAERS Safety Report 25185543 (Version 1)
Quarter: 2025Q2

REPORT INFORMATION
  Report Type: Other
  Country: US (occurrence: US)
  Receive Date: 20250410
  Receipt Date: 20250410
  Transmission Date: 20250716
  Serious: Yes (Death, Other)
  Sender: ALVOGEN
  Company Number: US-ALVOGEN-2025096593

PATIENT
  Age: 15 Year
  Sex: Male

DRUGS (1)
  1. FENTANYL [Suspect]
     Active Substance: FENTANYL
     Indication: Suicide attempt
     Route: 048

REACTIONS (5)
  - Completed suicide [Fatal]
  - Cardiac arrest [Unknown]
  - Respiratory arrest [Unknown]
  - Incorrect route of product administration [Unknown]
  - Prescription drug used without a prescription [Unknown]
